FAERS Safety Report 17688163 (Version 4)
Quarter: 2020Q2

REPORT INFORMATION
  Report Type: Report from Study
  Country: JP (occurrence: JP)
  Receive Date: 20200421
  Receipt Date: 20200610
  Transmission Date: 20200714
  Serious: Yes (Hospitalization)
  Sender: FDA-Public Use
  Company Number: JP-BAYER-2020-065532

PATIENT
  Age: 67 Year
  Sex: Male
  Weight: 75.8 kg

DRUGS (11)
  1. LAROTRECTINIB [Suspect]
     Active Substance: LAROTRECTINIB
     Indication: ACINIC CELL CARCINOMA OF SALIVARY GLAND
     Dosage: 50 MG, BID
     Dates: start: 20200522
  2. ALLOPURINOL. [Concomitant]
     Active Substance: ALLOPURINOL
     Indication: GOUT
     Dosage: DAILY DOSE 100 MG
     Route: 048
     Dates: start: 201103
  3. METFORMIN HYDROCHLORIDE;VILDAGLIPTIN [Concomitant]
     Active Substance: METFORMIN HYDROCHLORIDE\VILDAGLIPTIN
     Indication: DIABETES MELLITUS
     Dosage: 2 TABLET, TWICE PER DAY
     Route: 048
     Dates: start: 201103
  4. PITAVASTATIN. [Concomitant]
     Active Substance: PITAVASTATIN CALCIUM
     Indication: HYPERLIPIDAEMIA
     Dosage: DAILY DOSE 1 MG
     Route: 048
     Dates: start: 201103
  5. SEISHOKU [Concomitant]
     Active Substance: SODIUM CHLORIDE
     Indication: BLOOD CREATININE INCREASED
     Dosage: DAILY DOSE 1000 ML
     Route: 042
     Dates: start: 20200415, end: 20200422
  6. TELMISARTAN. [Concomitant]
     Active Substance: TELMISARTAN
     Indication: HYPERTENSION
     Dosage: DAILY DOSE 20 MG
     Route: 048
     Dates: start: 201103
  7. LAROTRECTINIB [Suspect]
     Active Substance: LAROTRECTINIB
     Indication: ACINIC CELL CARCINOMA OF SALIVARY GLAND
     Dosage: 100 MG,BID
     Dates: start: 20200317, end: 20200413
  8. PIRENOXINE [Concomitant]
     Active Substance: PIRENOXINE
     Indication: CATARACT
     Dosage: BOTH EYES, SEVERAL TIMES DAILY
     Route: 047
     Dates: start: 2018
  9. LAROTRECTINIB [Suspect]
     Active Substance: LAROTRECTINIB
     Indication: ACINIC CELL CARCINOMA OF SALIVARY GLAND
     Dosage: 100 MG, BID
     Dates: start: 20200218, end: 20200316
  10. CILNIDIPINE [Concomitant]
     Active Substance: CILNIDIPINE
     Indication: HYPERTENSION
     Dosage: DAILY DOSE 5 MG
     Route: 048
     Dates: start: 201103
  11. LAROTRECTINIB [Suspect]
     Active Substance: LAROTRECTINIB
     Indication: ACINIC CELL CARCINOMA OF SALIVARY GLAND
     Dosage: 75 MG, BID
     Dates: start: 20200501, end: 20200508

REACTIONS (2)
  - Hepatic function abnormal [Recovered/Resolved]
  - Hepatic function abnormal [Recovered/Resolved]

NARRATIVE: CASE EVENT DATE: 20200414
